FAERS Safety Report 6878756-8 (Version None)
Quarter: 2010Q3

REPORT INFORMATION
  Report Type: 
  Country: None (occurrence: None)
  Receive Date: 20100728
  Receipt Date: 20100714
  Transmission Date: 20110219
  Serious: Yes (Hospitalization, Other)
  Sender: FDA-Public Use
  Company Number: ZA-BAYER-201031510GPV

PATIENT
  Age: 43 Year
  Sex: Female

DRUGS (2)
  1. BETAFERON [Suspect]
     Indication: MULTIPLE SCLEROSIS
     Route: 058
     Dates: start: 20090702, end: 20100604
  2. BETAFERON [Suspect]
     Route: 058
     Dates: start: 20100607, end: 20100625

REACTIONS (4)
  - MAJOR DEPRESSION [None]
  - MULTIPLE SCLEROSIS RELAPSE [None]
  - PANNICULITIS [None]
  - THROMBOSIS [None]
